APPROVED DRUG PRODUCT: HYDROCORTISONE VALERATE
Active Ingredient: HYDROCORTISONE VALERATE
Strength: 0.2%
Dosage Form/Route: OINTMENT;TOPICAL
Application: A075085 | Product #001
Applicant: FOUGERA PHARMACEUTICALS INC
Approved: Jul 31, 2001 | RLD: No | RS: No | Type: DISCN